FAERS Safety Report 8423709-1 (Version None)
Quarter: 2012Q2

REPORT INFORMATION
  Report Type: 
  Country: None (occurrence: None)
  Receive Date: 20120608
  Receipt Date: 20120213
  Transmission Date: 20120825
  Serious: No
  Sender: FDA-Public Use
  Company Number: US-ASTRAZENECA-2012SE05293

PATIENT
  Age: 61 Year
  Sex: Female

DRUGS (4)
  1. ATACAND [Suspect]
     Route: 048
  2. NEXIUM [Suspect]
     Route: 048
  3. TOPROL-XL [Suspect]
     Route: 048
  4. CRESTOR [Suspect]
     Route: 048

REACTIONS (3)
  - TENDONITIS [None]
  - HYPERTENSION [None]
  - EYE INFECTION [None]
